FAERS Safety Report 8614312-9 (Version None)
Quarter: 2012Q3

REPORT INFORMATION
  Report Type: 
  Country: None (occurrence: None)
  Receive Date: 20120823
  Receipt Date: 20120813
  Transmission Date: 20120928
  Serious: Yes (Other)
  Sender: FDA-Public Use
  Company Number: IT-JNJFOC-20120807587

PATIENT
  Age: 14 Year
  Sex: Female

DRUGS (5)
  1. METHYLPREDNISOLONE SODIUM SUCCINATE [Concomitant]
     Indication: ANAPHYLAXIS PROPHYLAXIS
     Route: 042
     Dates: start: 20120810, end: 20120810
  2. REMICADE [Suspect]
     Route: 042
     Dates: start: 20120810, end: 20120810
  3. CHLORPHENIRAMINE MALEATE [Concomitant]
     Indication: ANAPHYLAXIS PROPHYLAXIS
     Route: 042
     Dates: start: 20120810, end: 20120810
  4. AZATHIOPRINE SODIUM [Concomitant]
     Indication: CROHN'S DISEASE
     Route: 048
  5. REMICADE [Suspect]
     Indication: CROHN'S DISEASE
     Dosage: 100 MG (STRENGTH) CYCLICAL
     Route: 042
     Dates: start: 20120727

REACTIONS (5)
  - INFUSION RELATED REACTION [None]
  - HYPERHIDROSIS [None]
  - DYSPNOEA [None]
  - ANAPHYLACTIC REACTION [None]
  - URTICARIA [None]
